FAERS Safety Report 7492957-X (Version None)
Quarter: 2011Q2

REPORT INFORMATION
  Report Type: 
  Country: None (occurrence: None)
  Receive Date: 20110520
  Receipt Date: 20110506
  Transmission Date: 20111010
  Serious: Yes (Hospitalization, Other)
  Sender: FDA-Public Use
  Company Number: FR-JNJFOC-20110506553

PATIENT
  Sex: Female

DRUGS (15)
  1. OFLOXACIN [Concomitant]
     Dates: start: 20101201
  2. ANAFRANIL [Interacting]
     Indication: PRODUCT USED FOR UNKNOWN INDICATION
     Dates: end: 20110220
  3. LORMETAZEPAM [Concomitant]
     Dates: end: 20110101
  4. EFFEXOR [Concomitant]
     Dates: end: 20110101
  5. ESOMEPRAZOLE MAGNESIUM [Concomitant]
     Dates: start: 20101201
  6. IMOVANE [Concomitant]
     Dates: start: 20110209
  7. FUROSEMIDE [Concomitant]
     Dates: start: 20101201
  8. LITHIUM CARBONATE [Interacting]
     Indication: PRODUCT USED FOR UNKNOWN INDICATION
     Route: 048
     Dates: end: 20110224
  9. ABILIFY [Concomitant]
     Dates: end: 20110101
  10. SYMBICORT [Concomitant]
  11. RIFAMPICIN [Concomitant]
     Dates: start: 20101201
  12. TRAMADOL HCL [Suspect]
     Indication: ANALGESIC THERAPY
     Route: 048
     Dates: start: 20110208, end: 20110223
  13. OXAZEPAM [Concomitant]
  14. TERCIAN [Concomitant]
  15. LOVENOX [Concomitant]
     Dates: start: 20101201

REACTIONS (4)
  - DRUG INTERACTION [None]
  - SEROTONIN SYNDROME [None]
  - RENAL FAILURE [None]
  - ANTIPSYCHOTIC DRUG LEVEL INCREASED [None]
